FAERS Safety Report 5749047-3 (Version None)
Quarter: 2008Q2

REPORT INFORMATION
  Report Type: 
  Country: None (occurrence: None)
  Receive Date: 20080527
  Receipt Date: 20080521
  Transmission Date: 20081010
  Serious: Yes (Death, Hospitalization)
  Sender: FDA-Public Use
  Company Number: JP-BRISTOL-MYERS SQUIBB COMPANY-14023485

PATIENT
  Age: 32 Year
  Sex: Male

DRUGS (9)
  1. ENDOXAN [Suspect]
     Indication: PLASMABLASTIC LYMPHOMA
     Route: 042
     Dates: start: 20060223, end: 20060411
  2. EFAVIRENZ [Suspect]
     Indication: ACQUIRED IMMUNODEFICIENCY SYNDROME
     Dosage: DF=CAPSULE
     Route: 048
     Dates: start: 20060217, end: 20060719
  3. ADRIACIN [Suspect]
     Indication: PLASMABLASTIC LYMPHOMA
     Route: 042
     Dates: start: 20060223, end: 20060411
  4. ONCOVIN [Suspect]
     Indication: PLASMABLASTIC LYMPHOMA
     Route: 042
     Dates: start: 20060223, end: 20060411
  5. RETROVIR [Suspect]
     Indication: ACQUIRED IMMUNODEFICIENCY SYNDROME
     Route: 048
     Dates: start: 20060217, end: 20060719
  6. PREDONINE [Suspect]
     Indication: PLASMABLASTIC LYMPHOMA
     Route: 048
     Dates: start: 20060223, end: 20060321
  7. GANCICLOVIR SODIUM [Suspect]
     Indication: CYTOMEGALOVIRUS ENTEROCOLITIS
     Route: 042
     Dates: start: 20060218, end: 20060719
  8. PENTAMIDINE ISETHIONATE [Concomitant]
     Dates: end: 20060719
  9. EPIVIR [Concomitant]
     Route: 048
     Dates: start: 20060217, end: 20060719

REACTIONS (4)
  - BONE MARROW FAILURE [None]
  - DEHYDRATION [None]
  - DIARRHOEA [None]
  - MULTI-ORGAN FAILURE [None]
